FAERS Safety Report 8182863-X (Version None)
Quarter: 2012Q1

REPORT INFORMATION
  Report Type: 
  Country: None (occurrence: None)
  Receive Date: 20120126
  Receipt Date: 20111102
  Transmission Date: 20120608
  Serious: Yes (Disabling)
  Sender: FDA-Public Use
  Company Number: PHEH2011US07135

PATIENT
  Age: 68 Year
  Sex: Male
  Weight: 77.5 kg

DRUGS (5)
  1. AFINITOR [Suspect]
     Indication: RENAL CELL CARCINOMA
     Dosage: 10 MG, DAILY, ORAL
     Route: 048
     Dates: start: 20111015, end: 20111020
  2. SIMVASTATIN [Concomitant]
  3. FUROSEMIDE [Concomitant]
  4. EZETIMIBE [Concomitant]
  5. GABAPENTIN [Concomitant]

REACTIONS (1)
  - DIARRHOEA [None]
